FAERS Safety Report 21555542 (Version 1)
Quarter: 2022Q4

REPORT INFORMATION
  Report Type: Spontaneous
  Country: US (occurrence: None)
  Receive Date: 20221103
  Receipt Date: 20221103
  Transmission Date: 20230113
  Serious: No
  Sender: FDA-Public Use
  Company Number: None

PATIENT
  Age: 61 Year
  Sex: Female

DRUGS (1)
  1. ENBREL [Suspect]
     Active Substance: ETANERCEPT
     Indication: Rheumatoid arthritis
     Dosage: FREQUENCY : WEEKLY;?
     Route: 058
     Dates: end: 20220930

REACTIONS (4)
  - Injection site pruritus [None]
  - Injection site erythema [None]
  - Injection site swelling [None]
  - Injection related reaction [None]

NARRATIVE: CASE EVENT DATE: 20220901
